FAERS Safety Report 6689875-3 (Version None)
Quarter: 2010Q2

REPORT INFORMATION
  Report Type: 
  Country: None (occurrence: None)
  Receive Date: 20100421
  Receipt Date: 20100412
  Transmission Date: 20101027
  Serious: Yes (Death, Other)
  Sender: FDA-Public Use
  Company Number: US-TYCO HEALTHCARE/MALLINCKRODT-T200801872

PATIENT
  Sex: Male
  Weight: 70.748 kg

DRUGS (19)
  1. OPTIMARK [Suspect]
     Indication: NUCLEAR MAGNETIC RESONANCE IMAGING
     Dosage: 20 ML, SINGLE
     Route: 042
     Dates: start: 20051019, end: 20051019
  2. MAGNEVIST [Suspect]
     Indication: ANGIOGRAM
     Dates: start: 20030326, end: 20030326
  3. VISIPAQUE [Suspect]
     Indication: ANGIOGRAM
     Dosage: UNK
     Dates: start: 20030326, end: 20030326
  4. SPIRIVA [Concomitant]
  5. RENAGEL                            /01459901/ [Concomitant]
  6. METOPROLOL TARTRATE [Concomitant]
  7. ENALAPRIL MALEATE [Concomitant]
  8. ALPRAZOLAM [Concomitant]
  9. ASPIRIN [Concomitant]
  10. CLARITIN                           /00917501/ [Concomitant]
  11. NORVASC [Concomitant]
  12. FLOMAX [Concomitant]
  13. LASIX [Concomitant]
  14. VITAMIN B-12 [Concomitant]
  15. CALCIUM [Concomitant]
  16. FLONASE [Concomitant]
  17. XANAX [Concomitant]
  18. ALBUTEROL [Concomitant]
  19. HYDRALAZINE HCL [Concomitant]

REACTIONS (29)
  - ABDOMINAL DISTENSION [None]
  - AMMONIA INCREASED [None]
  - ASTHENIA [None]
  - AURICULAR PERICHONDRITIS [None]
  - BLOOD GLUCOSE INCREASED [None]
  - CONFUSIONAL STATE [None]
  - DIARRHOEA HAEMORRHAGIC [None]
  - DIVERTICULUM [None]
  - FALL [None]
  - FATIGUE [None]
  - HALLUCINATION [None]
  - ILEUS [None]
  - LIVER DISORDER [None]
  - MALAISE [None]
  - MENTAL STATUS CHANGES [None]
  - NAUSEA [None]
  - NEPHROGENIC SYSTEMIC FIBROSIS [None]
  - NON-SMALL CELL LUNG CANCER [None]
  - OEDEMA PERIPHERAL [None]
  - OFF LABEL USE [None]
  - PAIN [None]
  - PERIPHERAL VASCULAR DISORDER [None]
  - POLYNEUROPATHY [None]
  - PRURITUS [None]
  - PYURIA [None]
  - RADICULOPATHY [None]
  - SKIN FISSURES [None]
  - THERMAL BURN [None]
  - VOMITING [None]
